FAERS Safety Report 12119387 (Version 1)
Quarter: 2016Q1

REPORT INFORMATION
  Report Type: Spontaneous
  Country: BR (occurrence: BR)
  Receive Date: 20160226
  Receipt Date: 20160226
  Transmission Date: 20160526
  Serious: Yes (Other)
  Sender: FDA-Public Use
  Company Number: BR-LUNDBECK-DKLU2010431

PATIENT
  Age: 65 Year
  Sex: Female

DRUGS (7)
  1. URBANIL [Suspect]
     Active Substance: CLOBAZAM
     Indication: PRODUCT USED FOR UNKNOWN INDICATION
     Route: 065
  2. CYCLOBENZAPRINE HYDROCHLORIDE. [Concomitant]
     Active Substance: CYCLOBENZAPRINE HYDROCHLORIDE
     Indication: PRODUCT USED FOR UNKNOWN INDICATION
     Route: 065
  3. EPAREMA [Concomitant]
     Indication: PRODUCT USED FOR UNKNOWN INDICATION
     Route: 065
  4. ATENOLOL. [Concomitant]
     Active Substance: ATENOLOL
     Indication: PRODUCT USED FOR UNKNOWN INDICATION
     Route: 065
  5. CALCITRAN [Concomitant]
     Indication: OSTEOPOROSIS
     Route: 065
  6. GELOL [Concomitant]
     Indication: OSTEOARTHRITIS
     Route: 065
  7. GELOL [Concomitant]
     Indication: ARTHRITIS

REACTIONS (2)
  - Cataract [Unknown]
  - Somnolence [Unknown]

NARRATIVE: CASE EVENT DATE: 20160111
